FAERS Safety Report 16274182 (Version 1)
Quarter: 2019Q2

REPORT INFORMATION
  Report Type: Spontaneous
  Country: CN (occurrence: CN)
  Receive Date: 20190506
  Receipt Date: 20190506
  Transmission Date: 20190711
  Serious: Yes (Other)
  Sender: FDA-Public Use
  Company Number: CN-ROCHE-2309804

PATIENT
  Age: 55 Year
  Sex: Female

DRUGS (5)
  1. PACLITAXEL. [Concomitant]
     Active Substance: PACLITAXEL
     Indication: INVASIVE BREAST CARCINOMA
     Route: 065
     Dates: start: 2016
  2. HERCEPTIN [Suspect]
     Active Substance: TRASTUZUMAB
     Indication: INVASIVE BREAST CARCINOMA
     Route: 065
     Dates: start: 2016, end: 201607
  3. EPIRUBICIN [Concomitant]
     Active Substance: EPIRUBICIN
     Indication: INVASIVE BREAST CARCINOMA
     Route: 065
     Dates: start: 2016
  4. CYCLOPHOSPHAMIDE. [Concomitant]
     Active Substance: CYCLOPHOSPHAMIDE
     Indication: INVASIVE BREAST CARCINOMA
     Route: 065
     Dates: start: 2016
  5. ANASTROZOLE. [Concomitant]
     Active Substance: ANASTROZOLE

REACTIONS (7)
  - Cholelithiasis [Unknown]
  - Hepatic steatosis [Unknown]
  - Lung disorder [Unknown]
  - Nephrolithiasis [Unknown]
  - Bone formation increased [Unknown]
  - Lymphoid tissue hyperplasia [Unknown]
  - Lung neoplasm [Unknown]
